FAERS Safety Report 15841053 (Version 1)
Quarter: 2019Q1

REPORT INFORMATION
  Report Type: Spontaneous
  Country: US (occurrence: US)
  Receive Date: 20190118
  Receipt Date: 20190118
  Transmission Date: 20190417
  Serious: No
  Sender: FDA-Public Use
  Company Number: US-ASTRAZENECA-2019SE04447

PATIENT
  Sex: Female
  Weight: 86.2 kg

DRUGS (1)
  1. XIGDUO XR [Suspect]
     Active Substance: DAPAGLIFLOZIN PROPANEDIOL\METFORMIN HYDROCHLORIDE
     Indication: TYPE 2 DIABETES MELLITUS
     Dosage: 5/1000 MG ORAL TWICE A DAY
     Route: 048

REACTIONS (3)
  - Therapy cessation [Not Recovered/Not Resolved]
  - Blood glucose increased [Unknown]
  - Off label use [Unknown]
